FAERS Safety Report 9745156 (Version 1)
Quarter: 2013Q4

REPORT INFORMATION
  Report Type: Report from Study
  Country: US (occurrence: US)
  Receive Date: 20131211
  Receipt Date: 20131211
  Transmission Date: 20140711
  Serious: Yes (Hospitalization)
  Sender: FDA-Public Use
  Company Number: US-BAYER-2013-145635

PATIENT
  Age: 20 Year
  Sex: Female

DRUGS (2)
  1. RIOCIGUAT (GUANYLATE CYCLASE STIMULATOR) [Suspect]
     Indication: LUNG DISORDER
     Dosage: 1 MG, TID
     Route: 048
     Dates: start: 20131113, end: 20131128
  2. RIOCIGUAT (GUANYLATE CYCLASE STIMULATOR) [Suspect]
     Indication: CARDIAC DISORDER
     Dosage: 0.5 MG, TID
     Route: 048
     Dates: start: 20131128, end: 20131203

REACTIONS (6)
  - Nausea [None]
  - Dizziness [None]
  - Nausea [Not Recovered/Not Resolved]
  - Dizziness [Not Recovered/Not Resolved]
  - Fluid retention [Not Recovered/Not Resolved]
  - Polyuria [Not Recovered/Not Resolved]
